FAERS Safety Report 14979281 (Version 1)
Quarter: 2018Q2

REPORT INFORMATION
  Report Type: Report from Study
  Country: US (occurrence: US)
  Receive Date: 20180606
  Receipt Date: 20180606
  Transmission Date: 20180711
  Serious: Yes (Other)
  Sender: FDA-Public Use
  Company Number: US-GILEAD-2018-0334701

PATIENT
  Age: 73 Year
  Sex: Male
  Weight: 80.8 kg

DRUGS (10)
  1. ZOVIRAX [Concomitant]
     Active Substance: ACYCLOVIR
  2. BACTRIM DS [Concomitant]
     Active Substance: SULFAMETHOXAZOLE\TRIMETHOPRIM
  3. TYLENOL PM [Concomitant]
     Active Substance: ACETAMINOPHEN\DIPHENHYDRAMINE
  4. LOPRESSOR [Concomitant]
     Active Substance: METOPROLOL TARTRATE
  5. IDELALISIB [Suspect]
     Active Substance: IDELALISIB
     Indication: NON-HODGKIN^S LYMPHOMA
     Dosage: 100 MG, BID
     Route: 048
     Dates: start: 2018
  6. XANAX [Concomitant]
     Active Substance: ALPRAZOLAM
  7. IDELALISIB [Suspect]
     Active Substance: IDELALISIB
     Indication: NODULAR LYMPHOCYTE PREDOMINANT HODGKIN LYMPHOMA
     Dosage: 150 MG, QD
     Route: 048
     Dates: start: 201801, end: 2018
  8. IDELALISIB [Suspect]
     Active Substance: IDELALISIB
     Indication: LYMPHOPROLIFERATIVE DISORDER
     Dosage: 150 MG, BID
     Route: 048
     Dates: start: 2018, end: 2018
  9. LISINOPRIL. [Concomitant]
     Active Substance: LISINOPRIL
  10. ROZEREM [Concomitant]
     Active Substance: RAMELTEON

REACTIONS (2)
  - Cytopenia [Recovering/Resolving]
  - Off label use [Recovered/Resolved]

NARRATIVE: CASE EVENT DATE: 201801
